FAERS Safety Report 7178137-6 (Version None)
Quarter: 2010Q4

REPORT INFORMATION
  Report Type: 
  Country: None (occurrence: None)
  Receive Date: 20101220
  Receipt Date: 20101215
  Transmission Date: 20110411
  Serious: Yes (Life-Threatening, Hospitalization)
  Sender: FDA-Public Use
  Company Number: B0597199A

PATIENT
  Sex: Female
  Weight: 48.5 kg

DRUGS (1)
  1. PAZOPANIB [Suspect]
     Indication: SARCOMA
     Dosage: 800MG PER DAY
     Route: 048
     Dates: start: 20090822, end: 20090918

REACTIONS (12)
  - ALANINE AMINOTRANSFERASE INCREASED [None]
  - ASPARTATE AMINOTRANSFERASE INCREASED [None]
  - BLOOD ALKALINE PHOSPHATASE INCREASED [None]
  - DISEASE PROGRESSION [None]
  - HEPATIC FUNCTION ABNORMAL [None]
  - HYPERBILIRUBINAEMIA [None]
  - MALIGNANT NEOPLASM PROGRESSION [None]
  - MULTI-ORGAN FAILURE [None]
  - SARCOMA UTERUS [None]
  - SEPSIS [None]
  - THROMBOCYTOPENIA [None]
  - URINARY TRACT INFECTION [None]
